FAERS Safety Report 14020238 (Version 1)
Quarter: 2017Q3

REPORT INFORMATION
  Report Type: Spontaneous
  Country: US (occurrence: US)
  Receive Date: 20170928
  Receipt Date: 20170928
  Transmission Date: 20171128
  Serious: Yes (Life-Threatening, Hospitalization, Other)
  Sender: FDA-Public Use
  Company Number: US-009507513-1709USA000195

PATIENT
  Age: 6 Year
  Sex: Female

DRUGS (2)
  1. STERILE DILUENT [Suspect]
     Active Substance: WATER
     Dosage: UNK
  2. M-M-R II [Suspect]
     Active Substance: MEASLES VIRUS STRAIN ENDERS^ ATTENUATED EDMONSTON LIVE ANTIGEN\MUMPS VIRUS STRAIN B LEVEL JERYL LYNN LIVE ANTIGEN\RUBELLA VIRUS STRAIN WISTAR RA 27/3 LIVE ANTIGEN
     Indication: PROPHYLAXIS
     Dosage: 1 DF
     Route: 058
     Dates: start: 20170825, end: 20170825

REACTIONS (5)
  - Blood glucose abnormal [Recovered/Resolved]
  - Anxiety [Unknown]
  - Generalised tonic-clonic seizure [Unknown]
  - Breath holding [Unknown]
  - Vomiting [Unknown]

NARRATIVE: CASE EVENT DATE: 20170825
